FAERS Safety Report 6856500-8 (Version None)
Quarter: 2010Q3

REPORT INFORMATION
  Report Type: 
  Country: None (occurrence: None)
  Receive Date: 20100719
  Receipt Date: 20100714
  Transmission Date: 20110219
  Serious: No
  Sender: FDA-Public Use
  Company Number: US-ROXANE LABORATORIES, INC.-2010-RO-00861RO

PATIENT
  Sex: Male

DRUGS (3)
  1. CALCITRIOL [Suspect]
     Indication: BLOOD PARATHYROID HORMONE ABNORMAL
     Dosage: 0.25 MCG
     Route: 048
     Dates: start: 20100610
  2. CALCITRIOL [Suspect]
     Indication: RENAL DISORDER
  3. VITAMIN D [Concomitant]

REACTIONS (3)
  - BLOOD CREATININE INCREASED [None]
  - BLOOD UREA INCREASED [None]
  - PLATELET COUNT DECREASED [None]
